FAERS Safety Report 4853120-1 (Version None)
Quarter: 2005Q4

REPORT INFORMATION
  Report Type: 
  Country: None (occurrence: None)
  Receive Date: 20051212
  Receipt Date: 20051206
  Transmission Date: 20060501
  Serious: Yes (Death)
  Sender: FDA-Public Use
  Company Number: 2005-135370-NL

PATIENT
  Age: 66 Year
  Sex: Male

DRUGS (9)
  1. MIRTAZAPINE [Suspect]
     Dosage: 15 MG/30 MG, ORAL
     Route: 048
     Dates: start: 20050314, end: 20050315
  2. MIRTAZAPINE [Suspect]
     Dosage: 15 MG/30 MG, ORAL
     Route: 048
     Dates: start: 20050316, end: 20050411
  3. VALPROATE SODIUM [Suspect]
     Dosage: 500 MG/1000 MG, ORAL
     Route: 048
     Dates: start: 20050408, end: 20050411
  4. VALPROATE SODIUM [Suspect]
     Dosage: 500 MG/1000 MG, ORAL
     Route: 048
     Dates: start: 20050401
  5. BACLOFEN [Suspect]
     Dosage: 10 MG, ORAL
     Route: 048
     Dates: start: 20050406, end: 20050411
  6. QUETIAPINE FUMARATE [Concomitant]
  7. ALLOPURINOL [Concomitant]
  8. PRAVASTATIN SODIUM [Concomitant]
  9. ALFUZOSIN HYDROCHLORIDE [Concomitant]

REACTIONS (4)
  - ARRHYTHMIA [None]
  - COMPLETED SUICIDE [None]
  - HEADACHE [None]
  - SELF INJURIOUS BEHAVIOUR [None]
